FAERS Safety Report 17346501 (Version 6)
Quarter: 2022Q2

REPORT INFORMATION
  Report Type: Spontaneous
  Country: DE (occurrence: DE)
  Receive Date: 20200130
  Receipt Date: 20220421
  Transmission Date: 20220721
  Serious: Yes (Hospitalization, Other)
  Sender: FDA-Public Use
  Company Number: None

PATIENT
  Sex: Female

DRUGS (32)
  1. VALPROATE SODIUM [Suspect]
     Active Substance: VALPROATE SODIUM
     Indication: Bipolar disorder
     Dosage: 1800 MG, QD
     Route: 048
     Dates: start: 201310
  2. VALPROATE SODIUM [Suspect]
     Active Substance: VALPROATE SODIUM
     Dosage: UNK UNK, QD
     Route: 048
  3. VALPROATE SODIUM [Suspect]
     Active Substance: VALPROATE SODIUM
     Dosage: 1300 ? 2500  MG, QD
     Route: 048
  4. VALPROATE SODIUM [Suspect]
     Active Substance: VALPROATE SODIUM
     Dosage: 2300 MG, QD
     Route: 065
     Dates: start: 20140222, end: 20140714
  5. VALPROATE SODIUM [Suspect]
     Active Substance: VALPROATE SODIUM
     Dosage: 1000 ? 0 ? 0 - 1300
     Route: 065
     Dates: start: 20140221
  6. VALPROATE SODIUM [Suspect]
     Active Substance: VALPROATE SODIUM
     Dosage: UNK (1000 ? 0 - 1000)
     Route: 048
     Dates: start: 20140520, end: 20140524
  7. VALPROATE SODIUM [Suspect]
     Active Substance: VALPROATE SODIUM
     Dosage: 2000 MG, QD
     Route: 065
     Dates: start: 20140627, end: 20140715
  8. VALPROATE SODIUM [Suspect]
     Active Substance: VALPROATE SODIUM
     Dosage: 300-0-0-1000 MG
     Route: 065
  9. QUETIAPINE FUMARATE [Suspect]
     Active Substance: QUETIAPINE FUMARATE
     Indication: Bipolar disorder
     Dosage: 200 MG, UNK
     Route: 065
  10. QUETIAPINE FUMARATE [Suspect]
     Active Substance: QUETIAPINE FUMARATE
     Dosage: 50 - 200 MG, QD
     Route: 065
  11. QUETIAPINE FUMARATE [Suspect]
     Active Substance: QUETIAPINE FUMARATE
     Dosage: 50-100 MG, QD
     Route: 048
     Dates: start: 201310
  12. QUETIAPINE FUMARATE [Suspect]
     Active Substance: QUETIAPINE FUMARATE
     Dosage: UNK
     Route: 065
  13. LITHIUM [Suspect]
     Active Substance: LITHIUM
     Indication: Bipolar disorder
     Dosage: (900 ? 2250 MG, QD (LOW DOSE)
     Route: 048
  14. LITHIUM [Suspect]
     Active Substance: LITHIUM
     Dosage: 450 - 0 - 0 - 675 MG
     Route: 065
  15. VALPROIC ACID [Suspect]
     Active Substance: VALPROIC ACID
     Indication: Bipolar disorder
     Dosage: UNK UNK, QD
     Route: 048
  16. VALPROIC ACID [Suspect]
     Active Substance: VALPROIC ACID
     Dosage: 2300 MG, QD
     Route: 065
     Dates: start: 20131206, end: 20140221
  17. VALPROIC ACID [Suspect]
     Active Substance: VALPROIC ACID
     Dosage: 2300 MG
     Route: 065
     Dates: start: 20140715, end: 20140725
  18. MIRTAZAPINE [Concomitant]
     Active Substance: MIRTAZAPINE
     Indication: Product used for unknown indication
     Dosage: 30 MG, QD
     Route: 065
  19. MIRTAZAPINE [Concomitant]
     Active Substance: MIRTAZAPINE
     Dosage: 30 MG, QD
     Route: 065
  20. MIRTAZAPINE [Concomitant]
     Active Substance: MIRTAZAPINE
     Dosage: 0-0-0-15MG
     Route: 065
  21. LEVOTHYROXINE [Concomitant]
     Active Substance: LEVOTHYROXINE
     Indication: Product used for unknown indication
     Dosage: 75 UG, QD
     Route: 065
  22. ARIPIPRAZOLE [Concomitant]
     Active Substance: ARIPIPRAZOLE
     Indication: Product used for unknown indication
     Dosage: 5 MG, QD
     Route: 065
  23. ARIPIPRAZOLE [Concomitant]
     Active Substance: ARIPIPRAZOLE
     Dosage: 5 MG, QD
     Route: 065
  24. AMLODIPINE [Concomitant]
     Active Substance: AMLODIPINE BESYLATE
     Indication: Product used for unknown indication
     Dosage: 5 MG, QD
     Route: 065
  25. AMLODIPINE [Concomitant]
     Active Substance: AMLODIPINE BESYLATE
     Dosage: 5 MG, QD
     Route: 065
  26. AMLODIPINE [Concomitant]
     Active Substance: AMLODIPINE BESYLATE
     Dosage: 1-0-0-1 MG
     Route: 065
  27. CITALOPRAM [Concomitant]
     Active Substance: CITALOPRAM HYDROBROMIDE
     Indication: Product used for unknown indication
     Dosage: 20 MG, QD
     Route: 065
  28. CITALOPRAM [Concomitant]
     Active Substance: CITALOPRAM HYDROBROMIDE
     Dosage: 20 MG, QD
     Route: 065
  29. PANTOPRAZOLE [Concomitant]
     Active Substance: PANTOPRAZOLE
     Indication: Product used for unknown indication
     Dosage: 40 MG, QD
     Route: 065
  30. PANTOPRAZOLE [Concomitant]
     Active Substance: PANTOPRAZOLE
     Dosage: 40 MG, QD
     Route: 065
  31. LAMOTRIGINE [Concomitant]
     Active Substance: LAMOTRIGINE
     Indication: Product used for unknown indication
     Dosage: 100 MG, QD
     Route: 065
  32. LAMOTRIGINE [Concomitant]
     Active Substance: LAMOTRIGINE
     Dosage: 100 MG, QD
     Route: 065

REACTIONS (29)
  - Bipolar I disorder [Unknown]
  - Gestational diabetes [Unknown]
  - Exposure during pregnancy [Unknown]
  - Polyhydramnios [Unknown]
  - Bipolar I disorder [Unknown]
  - Hypertension [Unknown]
  - Hypothyroidism [Unknown]
  - Bipolar disorder [Unknown]
  - Abdominal distension [Unknown]
  - Blood glucose fluctuation [Unknown]
  - Blood glucose increased [Unknown]
  - Frequent bowel movements [Recovered/Resolved]
  - Abdominal distension [Recovered/Resolved]
  - Sciatica [Unknown]
  - Abdominal pain [Recovered/Resolved]
  - Gastric disorder [Unknown]
  - Adverse drug reaction [Unknown]
  - Constipation [Unknown]
  - Blood glucose increased [Unknown]
  - Abdominal pain [Recovered/Resolved]
  - Mania [Unknown]
  - Tremor [Unknown]
  - Tremor [Unknown]
  - Weight increased [Unknown]
  - Sedation [Unknown]
  - Diarrhoea [Unknown]
  - Weight increased [Unknown]
  - Sedation [Unknown]
  - Obesity [Unknown]

NARRATIVE: CASE EVENT DATE: 20130101
